FAERS Safety Report 5677641-7 (Version None)
Quarter: 2008Q1

REPORT INFORMATION
  Report Type: 
  Country: None (occurrence: None)
  Receive Date: 20080324
  Receipt Date: 20080319
  Transmission Date: 20080703
  Serious: Yes (Life-Threatening)
  Sender: FDA-Public Use
  Company Number: PHBS2004JP10342

PATIENT
  Age: 79 Year
  Sex: Female
  Weight: 45 kg

DRUGS (7)
  1. SANDOSTATIN LAR [Suspect]
     Indication: VIPOMA
     Dosage: 20 MG/D
     Route: 030
     Dates: start: 20040707, end: 20040707
  2. SANDOSTATIN [Suspect]
     Indication: VIPOMA
     Dosage: 50 UG, TID
     Route: 058
     Dates: start: 20040706
  3. SANDOSTATIN [Suspect]
     Dosage: 50 UG, BID
     Route: 058
  4. SANDOSTATIN [Suspect]
     Dosage: 50 UG/DAY
     Route: 058
     Dates: start: 20040701
  5. SANDOSTATIN [Suspect]
     Dosage: 50 UG, TID
     Route: 058
     Dates: start: 20040725
  6. SANDOSTATIN [Suspect]
     Dosage: 50 UG, 6QD
     Route: 058
     Dates: start: 20040808
  7. TAKEPRON [Concomitant]
     Route: 048

REACTIONS (11)
  - BLOOD CREATININE INCREASED [None]
  - BLOOD POTASSIUM INCREASED [None]
  - DEHYDRATION [None]
  - DEPRESSED LEVEL OF CONSCIOUSNESS [None]
  - DIARRHOEA [None]
  - DISSEMINATED INTRAVASCULAR COAGULATION [None]
  - DRUG INEFFECTIVE [None]
  - OLIGURIA [None]
  - RENAL FAILURE ACUTE [None]
  - SHOCK [None]
  - TUMOUR NECROSIS [None]
